FAERS Safety Report 24701990 (Version 3)
Quarter: 2025Q3

REPORT INFORMATION
  Report Type: Spontaneous
  Country: EU (occurrence: EU)
  Receive Date: 20241205
  Receipt Date: 20250803
  Transmission Date: 20251021
  Serious: Yes (Other)
  Sender: ALEXION PHARMACEUTICALS
  Company Number: EU-SA-2024SA354255

PATIENT
  Age: 19 Month
  Sex: Male
  Weight: 10.5 kg

DRUGS (1)
  1. NIRSEVIMAB [Suspect]
     Active Substance: NIRSEVIMAB
     Dates: start: 20241009, end: 20241009

REACTIONS (4)
  - Respiratory syncytial virus bronchiolitis [Recovered/Resolved]
  - Cough [Recovering/Resolving]
  - Wheezing [Recovering/Resolving]
  - Respiratory disorder [Unknown]

NARRATIVE: CASE EVENT DATE: 20241029
